FAERS Safety Report 9068554 (Version 1)
Quarter: 2013Q1

REPORT INFORMATION
  Report Type: Spontaneous
  Country: US (occurrence: None)
  Receive Date: 20130212
  Receipt Date: 20130212
  Transmission Date: 20140127
  Serious: No
  Sender: FDA-Public Use
  Company Number: None

PATIENT
  Age: 27 Year
  Sex: Female

DRUGS (2)
  1. PEGASYS [Suspect]
     Indication: HEPATITIS C
     Dosage: 180 MCG  ONCE A WEEK  SUBCUTANEOUSLY
     Route: 058
     Dates: start: 20121124
  2. RIBAVIRIN [Suspect]
     Indication: HEPATITIS C
     Dosage: 400 MG  2 TIMES A DAY  BY MOUTH
     Route: 048
     Dates: start: 20121124

REACTIONS (1)
  - Anaemia [None]
